FAERS Safety Report 4745930-6 (Version None)
Quarter: 2005Q3

REPORT INFORMATION
  Report Type: 
  Country: None (occurrence: None)
  Receive Date: 20050816
  Receipt Date: 20041203
  Transmission Date: 20060218
  Serious: Yes (Other)
  Sender: FDA-Public Use
  Company Number: GB-GLAXOSMITHKLINE-B0359636A

PATIENT
  Sex: Female

DRUGS (1)
  1. SEROXAT [Suspect]
     Dosage: 20MG PER DAY
     Route: 065
     Dates: start: 19950512, end: 20010801

REACTIONS (5)
  - AGGRESSION [None]
  - COMPLETED SUICIDE [None]
  - EMOTIONAL DISTRESS [None]
  - ILL-DEFINED DISORDER [None]
  - SUICIDAL IDEATION [None]
